FAERS Safety Report 17396265 (Version 1)
Quarter: 2020Q1

REPORT INFORMATION
  Report Type: Spontaneous
  Country: US (occurrence: US)
  Receive Date: 20200210
  Receipt Date: 20200210
  Transmission Date: 20200409
  Serious: No
  Sender: FDA-Public Use
  Company Number: US-SA-2020SA034499

PATIENT
  Age: 74 Year
  Sex: Female

DRUGS (13)
  1. LEVOTHYROXINE. [Concomitant]
     Active Substance: LEVOTHYROXINE
  2. LISINOPRIL. [Concomitant]
     Active Substance: LISINOPRIL
  3. METHOTREXATE. [Concomitant]
     Active Substance: METHOTREXATE
  4. PERMETHRIN. [Concomitant]
     Active Substance: PERMETHRIN
  5. ATENOLOL NS [Concomitant]
  6. CHANTIX [Concomitant]
     Active Substance: VARENICLINE TARTRATE
  7. PREDNISONE. [Concomitant]
     Active Substance: PREDNISONE
  8. CITALOPRAM [Concomitant]
     Active Substance: CITALOPRAM HYDROBROMIDE
  9. DOXYCYCLINE. [Concomitant]
     Active Substance: DOXYCYCLINE
  10. KEVZARA [Suspect]
     Active Substance: SARILUMAB
     Dosage: 200 MG, QOW
     Route: 058
  11. AMLODIPINE [Concomitant]
     Active Substance: AMLODIPINE BESYLATE
  12. ATORVASTATIN [Concomitant]
     Active Substance: ATORVASTATIN
  13. HYDROCODONE [Concomitant]
     Active Substance: HYDROCODONE

REACTIONS (1)
  - Product dose omission [Unknown]
